FAERS Safety Report 8494663-1 (Version None)
Quarter: 2012Q3

REPORT INFORMATION
  Report Type: 
  Country: None (occurrence: None)
  Receive Date: 20120709
  Receipt Date: 20120703
  Transmission Date: 20120928
  Serious: Yes (Hospitalization, Other)
  Sender: FDA-Public Use
  Company Number: PHHY2012FR057660

PATIENT
  Sex: Male
  Weight: 103 kg

DRUGS (8)
  1. METFORMIN HYDROCHLORIDE [Suspect]
     Indication: TYPE 2 DIABETES MELLITUS
     Dosage: 2 DF, DAILY
     Dates: end: 20120328
  2. OXAZEPAM [Concomitant]
  3. GLYBURIDE [Suspect]
     Dosage: UNK
     Route: 048
     Dates: end: 20120328
  4. PROPRANOLOL [Concomitant]
  5. ESCITALOPRAM [Concomitant]
  6. INDAPAMIDE [Suspect]
     Dosage: UNK
     Route: 048
     Dates: end: 20120328
  7. ATORVASTATIN [Concomitant]
  8. PLAVIX [Concomitant]

REACTIONS (7)
  - GAIT DISTURBANCE [None]
  - HEPATIC STEATOSIS [None]
  - RENAL FAILURE [None]
  - CYTOLYTIC HEPATITIS [None]
  - CHOLELITHIASIS [None]
  - FALL [None]
  - OSTEOARTHRITIS [None]
